FAERS Safety Report 8053526-6 (Version None)
Quarter: 2012Q1

REPORT INFORMATION
  Report Type: 
  Country: None (occurrence: None)
  Receive Date: 20120118
  Receipt Date: 20120116
  Transmission Date: 20120608
  Serious: Yes (Hospitalization, Other)
  Sender: FDA-Public Use
  Company Number: US-BAYER-2011-118383

PATIENT
  Age: 35 Year
  Sex: Female

DRUGS (1)
  1. MIRENA [Suspect]
     Indication: CONTRACEPTION
     Dosage: 20 MCG/24HR, CONT
     Route: 015
     Dates: start: 20101201, end: 20111109

REACTIONS (7)
  - DEVICE DISLOCATION [None]
  - VAGINAL HAEMORRHAGE [None]
  - DEVICE EXPULSION [None]
  - SEPSIS [None]
  - PREGNANCY WITH CONTRACEPTIVE DEVICE [None]
  - ABORTION SPONTANEOUS [None]
  - RETAINED PLACENTA OR MEMBRANES [None]
